FAERS Safety Report 19681455 (Version 1)
Quarter: 2021Q3

REPORT INFORMATION
  Report Type: Spontaneous
  Country: US (occurrence: US)
  Receive Date: 20210810
  Receipt Date: 20210810
  Transmission Date: 20211014
  Serious: No
  Sender: FDA-Public Use
  Company Number: US-IGSA-BIG0014399

PATIENT
  Age: 40 Year
  Sex: Female
  Weight: 65.76 kg

DRUGS (14)
  1. GAMUNEX?C [Suspect]
     Active Substance: HUMAN IMMUNOGLOBULIN G
     Indication: PRODUCT USE IN UNAPPROVED INDICATION
  2. POTASSIUM [Concomitant]
     Active Substance: POTASSIUM
     Dosage: 4 CAPSULES, QD
     Route: 048
  3. CALCIUM + MAGNESIUM [Concomitant]
     Active Substance: CALCIUM\MAGNESIUM
     Dosage: 4 CAPSULES, QD
     Route: 048
  4. BIOZYME [Concomitant]
     Active Substance: CHYMOTRYPSIN\NEOMYCIN PALMITATE\TRYPSIN
     Dosage: 6 CAPSULES, QD
     Route: 048
  5. AMITRIPTYLINE [Concomitant]
     Active Substance: AMITRIPTYLINE
  6. B ACTIVE [Concomitant]
     Dosage: 2 CAPSULES, QD
     Route: 048
  7. VITAMIN D3 [Concomitant]
     Active Substance: CHOLECALCIFEROL
     Dosage: 50000 INTERNATIONAL UNIT, Q.WK.
     Route: 048
  8. VITAMIN D3 [Concomitant]
     Active Substance: CHOLECALCIFEROL
     Dosage: 25000 INTERNATIONAL UNIT, QD
     Route: 048
  9. CURAMED [CURCUMA LONGA RHIZOME] [Concomitant]
     Dosage: 1 CAPSULE, QD
     Route: 048
  10. BENADRYL A [Concomitant]
     Active Substance: DIPHENHYDRAMINE HYDROCHLORIDE
     Indication: PREMEDICATION
     Dosage: 25 MILLIGRAM, SINGLE
     Route: 048
     Dates: start: 20210317
  11. ENDOMUNE ADVANCED PROBIOTIC [Concomitant]
     Dosage: UNK UNK, QD
     Route: 048
  12. GAMUNEX?C [Suspect]
     Active Substance: HUMAN IMMUNOGLOBULIN G
     Indication: MULTIPLE SCLEROSIS
     Dosage: 1 GRAM PER KILOGRAM
     Route: 042
     Dates: start: 20191210, end: 20210317
  13. APAP [Concomitant]
     Active Substance: ACETAMINOPHEN
     Indication: PREMEDICATION
     Dosage: 1 GRAM, SINGLE
     Dates: start: 20210317
  14. ZINC. [Concomitant]
     Active Substance: ZINC
     Dosage: 1 CAPSULE, QD
     Route: 048

REACTIONS (4)
  - Gastrooesophageal reflux disease [Recovered/Resolved]
  - Chest pain [Recovered/Resolved]
  - Dyspnoea [Recovered/Resolved]
  - Abdominal pain upper [Recovered/Resolved]

NARRATIVE: CASE EVENT DATE: 20210317
